FAERS Safety Report 7762793-5 (Version None)
Quarter: 2011Q3

REPORT INFORMATION
  Report Type: 
  Country: None (occurrence: None)
  Receive Date: 20110920
  Receipt Date: 20110915
  Transmission Date: 20111222
  Serious: Yes (Hospitalization)
  Sender: FDA-Public Use
  Company Number: CA-BRISTOL-MYERS SQUIBB COMPANY-16066441

PATIENT
  Age: 70 Year
  Sex: Male

DRUGS (1)
  1. IPILIMUMAB [Suspect]
     Indication: MALIGNANT MELANOMA
     Dosage: 1DF IS 35L/MG
     Route: 042
     Dates: start: 20110908

REACTIONS (5)
  - TRANSAMINASES INCREASED [None]
  - FATIGUE [None]
  - DIARRHOEA [None]
  - DYSPEPSIA [None]
  - DECREASED APPETITE [None]
